FAERS Safety Report 8413763-5 (Version None)
Quarter: 2012Q2

REPORT INFORMATION
  Report Type: 
  Country: None (occurrence: None)
  Receive Date: 20120605
  Receipt Date: 20120521
  Transmission Date: 20120825
  Serious: Yes (Other)
  Sender: FDA-Public Use
  Company Number: CA-WATSON-2012-08311

PATIENT
  Age: 49 Year
  Sex: Female

DRUGS (7)
  1. FENTANYL-100 [Suspect]
     Dosage: 13 MCG/KG (TOTAL) BY INTERMITTENT BOLUS
     Route: 042
  2. FENTANYL-100 [Suspect]
     Indication: ANAESTHESIA
     Dosage: 5 MCG/KG
     Route: 042
  3. FLUVOXAMINE MALEATE [Suspect]
     Indication: PRODUCT USED FOR UNKNOWN INDICATION
     Dosage: UNK
     Route: 065
  4. MEPERIDINE HCL [Suspect]
     Indication: PRODUCT USED FOR UNKNOWN INDICATION
     Dosage: UNK
     Route: 065
  5. METHYLENE BLUE [Suspect]
     Indication: HYPOTENSION
     Dosage: 1 MG/KG X 2 DOSES
     Route: 065
  6. PAROXETINE HYDROCHLORIDE [Suspect]
     Indication: ANXIETY
     Dosage: 40 MG, DAILY
     Route: 065
  7. PAROXETINE HYDROCHLORIDE [Suspect]
     Indication: DEPRESSION

REACTIONS (2)
  - SEROTONIN SYNDROME [None]
  - TOXIC ENCEPHALOPATHY [None]
